FAERS Safety Report 10208750 (Version 1)
Quarter: 2014Q2

REPORT INFORMATION
  Report Type: Spontaneous
  Country: US (occurrence: None)
  Receive Date: 20140529
  Receipt Date: 20140529
  Transmission Date: 20141212
  Serious: Yes (Life-Threatening, Hospitalization)
  Sender: FDA-Public Use
  Company Number: None

PATIENT
  Age: 18 Year
  Sex: Female
  Weight: 85 kg

DRUGS (2)
  1. NUVARING MERCK [Suspect]
  2. LEVOTHYROXINE [Concomitant]

REACTIONS (3)
  - Flank pain [None]
  - Dyspnoea [None]
  - Embolism [None]
